FAERS Safety Report 6376795-7 (Version None)
Quarter: 2009Q3

REPORT INFORMATION
  Report Type: 
  Country: None (occurrence: None)
  Receive Date: 20090924
  Receipt Date: 20090924
  Transmission Date: 20100115
  Serious: No
  Sender: FDA-Public Use
  Company Number: None

PATIENT
  Age: 63 Year
  Sex: Female
  Weight: 84.369 kg

DRUGS (1)
  1. CLONIDINE [Suspect]
     Indication: HYPERTENSION
     Dosage: 0.2 MG 7 DAYS
     Dates: start: 20090905, end: 20090911

REACTIONS (3)
  - BLOOD PRESSURE INCREASED [None]
  - DEVICE ADHESION ISSUE [None]
  - PRODUCT SUBSTITUTION ISSUE [None]
